FAERS Safety Report 13644919 (Version 1)
Quarter: 2017Q2

REPORT INFORMATION
  Report Type: Spontaneous
  Country: US (occurrence: US)
  Receive Date: 20170612
  Receipt Date: 20170612
  Transmission Date: 20170830
  Serious: No
  Sender: FDA-Public Use
  Company Number: US-ROCHE-1342762

PATIENT
  Sex: Male
  Weight: 71 kg

DRUGS (4)
  1. XELODA [Suspect]
     Active Substance: CAPECITABINE
     Indication: HEPATIC CANCER
     Route: 048
     Dates: start: 20131208
  2. XELODA [Suspect]
     Active Substance: CAPECITABINE
     Route: 048
     Dates: start: 20131206
  3. MORPHINE [Concomitant]
     Active Substance: MORPHINE
  4. XELODA [Suspect]
     Active Substance: CAPECITABINE
     Dosage: EVERY MORNING (100 MG) EVERY EVENING (500 MG) FOR 2 WEEKS ON AND 1 WEEK OFF.
     Route: 048
     Dates: start: 20140130

REACTIONS (3)
  - Tongue coated [Unknown]
  - Palmar-plantar erythrodysaesthesia syndrome [Not Recovered/Not Resolved]
  - Oedema peripheral [Not Recovered/Not Resolved]
